FAERS Safety Report 7478768-X (Version None)
Quarter: 2011Q2

REPORT INFORMATION
  Report Type: 
  Country: None (occurrence: None)
  Receive Date: 20110513
  Receipt Date: 20110509
  Transmission Date: 20111010
  Serious: Yes (Death, Hospitalization)
  Sender: FDA-Public Use
  Company Number: ES-ROCHE-681357

PATIENT
  Sex: Female
  Weight: 55.5 kg

DRUGS (8)
  1. ENALAPRIL [Concomitant]
     Dates: start: 20080101
  2. IRINOTECAN HYDROCHLORIDE [Suspect]
     Dosage: FORM:INFUSION, TEMPORARILY INTERRUPTED
     Route: 042
     Dates: start: 20100113, end: 20100113
  3. IRINOTECAN HYDROCHLORIDE [Suspect]
     Route: 042
     Dates: start: 20100210, end: 20100311
  4. CAPECITABINE [Suspect]
     Route: 048
     Dates: start: 20100211, end: 20100311
  5. PREGABALINE [Concomitant]
     Dates: start: 20080101
  6. RISEDRONATE [Concomitant]
     Dosage: DRUG NAME REPORTED AS: RISEDRONATO DE SODIO
     Dates: start: 20080101
  7. CAPECITABINE [Suspect]
     Dosage: FREQUENCY-DAY 2- DAY 8: Q2W. TEMPORARILY INTERRUPTED.
     Route: 048
     Dates: start: 20100114, end: 20100101
  8. AVASTIN [Suspect]
     Dosage: FORM:INFUSION
     Route: 042
     Dates: start: 20100113, end: 20100311

REACTIONS (3)
  - MULTI-ORGAN FAILURE [None]
  - NEUTROPENIA [None]
  - DIARRHOEA [None]
